FAERS Safety Report 6847699-8 (Version None)
Quarter: 2010Q3

REPORT INFORMATION
  Report Type: 
  Country: None (occurrence: None)
  Receive Date: 20100714
  Receipt Date: 20100629
  Transmission Date: 20110219
  Serious: Yes (Hospitalization)
  Sender: FDA-Public Use
  Company Number: 234466J08USA

PATIENT
  Age: 38 Year
  Sex: Female
  Weight: 91 kg

DRUGS (8)
  1. REBIF [Suspect]
     Indication: MULTIPLE SCLEROSIS
     Dosage: 44 MCG, 3 IN 1 WK, SUBCUTANEOUS
     Route: 058
     Dates: start: 20070629
  2. LOPRESSOR [Concomitant]
  3. ZESTRIL [Concomitant]
  4. LEVOTHYROXINE (LEVOIHYROXINE) [Concomitant]
  5. EFFEXOR [Concomitant]
  6. NEURONTIN [Concomitant]
  7. PREDNISONE TAB [Concomitant]
  8. LASIX [Concomitant]

REACTIONS (18)
  - BACK PAIN [None]
  - BLADDER DISORDER [None]
  - BLADDER INJURY [None]
  - CARDIAC FAILURE CONGESTIVE [None]
  - DYSMENORRHOEA [None]
  - HEAD INJURY [None]
  - HEART VALVE INCOMPETENCE [None]
  - KIDNEY INFECTION [None]
  - LOSS OF CONSCIOUSNESS [None]
  - OVARIAN CYST [None]
  - PAIN IN EXTREMITY [None]
  - PNEUMONIA [None]
  - PROCEDURAL COMPLICATION [None]
  - PULMONARY EMBOLISM [None]
  - PULMONARY HYPERTENSION [None]
  - SLEEP APNOEA SYNDROME [None]
  - TACHYCARDIA [None]
  - URINARY TRACT INFECTION [None]
